FAERS Safety Report 15173275 (Version 25)
Quarter: 2022Q4

REPORT INFORMATION
  Report Type: Spontaneous
  Country: CA (occurrence: CA)
  Receive Date: 20180720
  Receipt Date: 20221222
  Transmission Date: 20230112
  Serious: Yes (Other)
  Sender: FDA-Public Use
  Company Number: CA-FERRINGPH-2018FE03810

PATIENT
  Age: 53 Year
  Sex: Male

DRUGS (297)
  1. MESALAMINE [Suspect]
     Active Substance: MESALAMINE
     Indication: Colitis ulcerative
     Route: 048
     Dates: start: 20160101, end: 20161001
  2. MESALAMINE [Suspect]
     Active Substance: MESALAMINE
     Route: 065
     Dates: start: 20170101, end: 20170901
  3. MESALAMINE [Suspect]
     Active Substance: MESALAMINE
     Dosage: 4.8 MILLIGRAM
     Route: 065
  4. MESALAMINE [Suspect]
     Active Substance: MESALAMINE
     Route: 065
     Dates: start: 201601, end: 201601
  5. MESALAMINE [Suspect]
     Active Substance: MESALAMINE
     Route: 065
     Dates: start: 201601, end: 201601
  6. MESALAMINE [Suspect]
     Active Substance: MESALAMINE
     Route: 065
     Dates: start: 2017, end: 201709
  7. MESALAMINE [Suspect]
     Active Substance: MESALAMINE
     Dosage: 8 DOSAGE FORM, Q8WK
     Route: 065
     Dates: start: 201707
  8. MESALAMINE [Suspect]
     Active Substance: MESALAMINE
     Dosage: 6 DOSAGE FORM, QD
     Route: 065
     Dates: start: 20161001
  9. MESALAMINE [Suspect]
     Active Substance: MESALAMINE
     Route: 048
     Dates: start: 20161001
  10. MESALAMINE [Suspect]
     Active Substance: MESALAMINE
     Route: 065
     Dates: start: 202109, end: 202109
  11. MESALAMINE [Suspect]
     Active Substance: MESALAMINE
     Dosage: 3 DOSAGE FORM, BID
     Route: 065
     Dates: start: 2016, end: 20170901
  12. MESALAMINE [Suspect]
     Active Substance: MESALAMINE
     Route: 065
     Dates: start: 20170101, end: 20171001
  13. MESALAMINE [Suspect]
     Active Substance: MESALAMINE
     Dosage: 2.4 GRAM, QD
     Route: 065
     Dates: start: 20171001
  14. MESALAMINE [Suspect]
     Active Substance: MESALAMINE
     Route: 065
     Dates: start: 20170101, end: 20170901
  15. MESALAMINE [Suspect]
     Active Substance: MESALAMINE
     Dosage: 4.8 GRAM, QD
     Route: 065
     Dates: start: 20161001
  16. MESALAMINE [Suspect]
     Active Substance: MESALAMINE
     Route: 065
     Dates: start: 201601, end: 201610
  17. MESALAMINE [Suspect]
     Active Substance: MESALAMINE
     Dosage: 3 DOSAGE FORM, BID
     Route: 065
     Dates: start: 201610
  18. MESALAMINE [Suspect]
     Active Substance: MESALAMINE
     Route: 065
     Dates: start: 20170101
  19. MESALAMINE [Suspect]
     Active Substance: MESALAMINE
     Route: 065
     Dates: start: 2009
  20. MESALAMINE [Suspect]
     Active Substance: MESALAMINE
     Route: 065
  21. MESALAMINE [Suspect]
     Active Substance: MESALAMINE
     Route: 048
  22. MESALAMINE [Suspect]
     Active Substance: MESALAMINE
     Route: 065
  23. MESALAMINE [Suspect]
     Active Substance: MESALAMINE
     Route: 065
  24. MESALAMINE [Suspect]
     Active Substance: MESALAMINE
     Route: 065
  25. MESALAMINE [Suspect]
     Active Substance: MESALAMINE
     Route: 048
  26. MESALAMINE [Suspect]
     Active Substance: MESALAMINE
     Route: 065
  27. MESALAMINE [Suspect]
     Active Substance: MESALAMINE
     Route: 065
  28. MESALAMINE [Suspect]
     Active Substance: MESALAMINE
     Route: 065
  29. MESALAMINE [Suspect]
     Active Substance: MESALAMINE
     Route: 065
  30. MESALAMINE [Suspect]
     Active Substance: MESALAMINE
     Dosage: DURATION: 487 (UNSPECIFIED UNITS)
     Route: 065
  31. MESALAMINE [Suspect]
     Active Substance: MESALAMINE
     Route: 065
  32. MESALAMINE [Suspect]
     Active Substance: MESALAMINE
     Route: 048
  33. MESALAMINE [Suspect]
     Active Substance: MESALAMINE
     Dosage: DURATION : 243 (UNSPECIFIED UNITS)
     Route: 065
  34. MESALAMINE [Suspect]
     Active Substance: MESALAMINE
     Route: 048
  35. MESALAMINE [Suspect]
     Active Substance: MESALAMINE
     Route: 065
  36. MESALAMINE [Suspect]
     Active Substance: MESALAMINE
     Route: 065
  37. MESALAMINE [Suspect]
     Active Substance: MESALAMINE
     Route: 065
  38. MESALAMINE [Suspect]
     Active Substance: MESALAMINE
     Route: 065
  39. MESALAMINE [Suspect]
     Active Substance: MESALAMINE
     Route: 065
  40. MESALAMINE [Suspect]
     Active Substance: MESALAMINE
     Route: 065
  41. MESALAMINE [Suspect]
     Active Substance: MESALAMINE
     Route: 048
  42. MESALAMINE [Suspect]
     Active Substance: MESALAMINE
     Route: 065
  43. MESALAMINE [Suspect]
     Active Substance: MESALAMINE
     Route: 065
  44. MESALAMINE [Suspect]
     Active Substance: MESALAMINE
     Route: 048
  45. BUDESONIDE [Suspect]
     Active Substance: BUDESONIDE
     Indication: Colitis ulcerative
     Dosage: 1 DF, 1 TIME DAILY (PROLONGED-RELEASE TABLET)
     Route: 048
     Dates: start: 20170701
  46. BUDESONIDE [Suspect]
     Active Substance: BUDESONIDE
     Dosage: 8 DOSAGE FORM, Q8WEEKS (PROLONGED-RELEASE TABLET)
     Route: 048
     Dates: start: 200707
  47. BUDESONIDE [Suspect]
     Active Substance: BUDESONIDE
     Route: 048
  48. BUDESONIDE [Suspect]
     Active Substance: BUDESONIDE
     Route: 048
  49. BUDESONIDE [Suspect]
     Active Substance: BUDESONIDE
     Route: 048
  50. BUDESONIDE [Suspect]
     Active Substance: BUDESONIDE
     Route: 048
  51. BUDESONIDE [Suspect]
     Active Substance: BUDESONIDE
     Route: 048
  52. BUDESONIDE [Suspect]
     Active Substance: BUDESONIDE
     Route: 048
  53. BUDESONIDE [Suspect]
     Active Substance: BUDESONIDE
     Route: 048
  54. BUDESONIDE [Suspect]
     Active Substance: BUDESONIDE
     Route: 048
  55. BUDESONIDE [Suspect]
     Active Substance: BUDESONIDE
     Route: 048
  56. BUDESONIDE [Suspect]
     Active Substance: BUDESONIDE
     Route: 048
  57. BUDESONIDE [Suspect]
     Active Substance: BUDESONIDE
     Route: 048
  58. BUDESONIDE [Suspect]
     Active Substance: BUDESONIDE
     Route: 048
  59. BUDESONIDE [Suspect]
     Active Substance: BUDESONIDE
     Route: 048
  60. BUDESONIDE [Suspect]
     Active Substance: BUDESONIDE
     Route: 048
  61. BUDESONIDE [Suspect]
     Active Substance: BUDESONIDE
     Route: 065
  62. BUDESONIDE [Suspect]
     Active Substance: BUDESONIDE
     Route: 048
  63. BUDESONIDE [Suspect]
     Active Substance: BUDESONIDE
     Indication: Colitis ulcerative
     Dosage: 1 DF, 1 TIME DAILY (PROLONGED-RELEASE TABLET)
     Route: 048
     Dates: start: 20170701
  64. BUDESONIDE [Suspect]
     Active Substance: BUDESONIDE
     Dosage: 8 DOSAGE FORM, Q8WEEKS (PROLONGED-RELEASE TABLET)
     Route: 048
     Dates: start: 200707
  65. BUDESONIDE [Suspect]
     Active Substance: BUDESONIDE
     Route: 048
  66. BUDESONIDE [Suspect]
     Active Substance: BUDESONIDE
     Route: 048
  67. BUDESONIDE [Suspect]
     Active Substance: BUDESONIDE
     Route: 048
  68. BUDESONIDE [Suspect]
     Active Substance: BUDESONIDE
     Route: 048
  69. BUDESONIDE [Suspect]
     Active Substance: BUDESONIDE
     Dosage: TABLET (DELAYED AND EXTENDED RELEASE)
     Route: 048
  70. HYDROCORTISONE [Suspect]
     Active Substance: HYDROCORTISONE
     Indication: Colitis ulcerative
     Route: 048
  71. HYDROCORTISONE [Suspect]
     Active Substance: HYDROCORTISONE
     Dosage: 8 DOSAGE FORM (8 DOSAGE FORM EVERY 8 WEEK)
     Route: 048
     Dates: start: 201707
  72. HYDROCORTISONE [Suspect]
     Active Substance: HYDROCORTISONE
     Dosage: 1 DF, 1 TIME DAILY
     Route: 048
     Dates: start: 201807
  73. HYDROCORTISONE [Suspect]
     Active Substance: HYDROCORTISONE
     Route: 048
  74. HYDROCORTISONE [Suspect]
     Active Substance: HYDROCORTISONE
     Route: 048
  75. HYDROCORTISONE [Suspect]
     Active Substance: HYDROCORTISONE
     Route: 065
  76. HYDROCORTISONE [Suspect]
     Active Substance: HYDROCORTISONE
     Route: 065
  77. HYDROCORTISONE [Suspect]
     Active Substance: HYDROCORTISONE
     Route: 065
  78. HYDROCORTISONE [Suspect]
     Active Substance: HYDROCORTISONE
     Route: 065
  79. HYDROCORTISONE [Suspect]
     Active Substance: HYDROCORTISONE
     Route: 048
  80. HYDROCORTISONE [Suspect]
     Active Substance: HYDROCORTISONE
     Route: 048
  81. HYDROCORTISONE [Suspect]
     Active Substance: HYDROCORTISONE
     Indication: Colitis ulcerative
     Route: 042
  82. HYDROCORTISONE [Suspect]
     Active Substance: HYDROCORTISONE
     Indication: Colitis ulcerative
     Dosage: UNK, UNK, QD
     Route: 065
     Dates: start: 201807
  83. HYDROCORTISONE [Suspect]
     Active Substance: HYDROCORTISONE
     Dosage: 1 DOSAGE FORM, 1X/DAY QD
     Route: 048
  84. HYDROCORTISONE [Suspect]
     Active Substance: HYDROCORTISONE
     Dosage: 8 DOSAGE FORM, Q8 WEEK
     Route: 065
     Dates: start: 201707
  85. HYDROCORTISONE ACETATE [Suspect]
     Active Substance: HYDROCORTISONE ACETATE
     Indication: Crohn^s disease
     Route: 065
  86. HYDROCORTISONE ACETATE [Suspect]
     Active Substance: HYDROCORTISONE ACETATE
     Indication: Colitis ulcerative
     Route: 065
  87. HYDROCORTISONE ACETATE [Suspect]
     Active Substance: HYDROCORTISONE ACETATE
     Indication: Crohn^s disease
     Route: 048
  88. HYDROCORTISONE ACETATE [Suspect]
     Active Substance: HYDROCORTISONE ACETATE
     Indication: Colitis ulcerative
     Route: 048
  89. HYDROCORTISONE ACETATE [Suspect]
     Active Substance: HYDROCORTISONE ACETATE
     Route: 048
  90. MESALAMINE [Suspect]
     Active Substance: MESALAMINE
     Indication: Colitis ulcerative
     Route: 065
  91. MESALAMINE [Suspect]
     Active Substance: MESALAMINE
     Route: 065
  92. MESALAMINE [Suspect]
     Active Substance: MESALAMINE
     Route: 048
  93. MESALAMINE [Suspect]
     Active Substance: MESALAMINE
     Route: 065
  94. MESALAMINE [Suspect]
     Active Substance: MESALAMINE
     Route: 048
  95. MESALAMINE [Suspect]
     Active Substance: MESALAMINE
     Route: 065
  96. MESALAMINE [Suspect]
     Active Substance: MESALAMINE
     Route: 048
  97. MESALAMINE [Suspect]
     Active Substance: MESALAMINE
     Route: 065
  98. MESALAMINE [Suspect]
     Active Substance: MESALAMINE
     Route: 065
  99. MESALAMINE [Suspect]
     Active Substance: MESALAMINE
     Dosage: DURATION: 243 (UNSPECIFIED UNIT)
     Route: 065
  100. MESALAMINE [Suspect]
     Active Substance: MESALAMINE
     Route: 065
  101. MESALAMINE [Suspect]
     Active Substance: MESALAMINE
     Route: 065
  102. MESALAMINE [Suspect]
     Active Substance: MESALAMINE
     Dosage: TABLET (DELAYEDAND EXTENDED RELEASE)
     Route: 065
  103. MESALAMINE [Suspect]
     Active Substance: MESALAMINE
     Route: 065
  104. MESALAMINE [Suspect]
     Active Substance: MESALAMINE
     Route: 048
  105. MESALAMINE [Suspect]
     Active Substance: MESALAMINE
     Route: 065
  106. MESALAMINE [Suspect]
     Active Substance: MESALAMINE
     Route: 065
  107. MESALAMINE [Suspect]
     Active Substance: MESALAMINE
     Route: 065
  108. MESALAMINE [Suspect]
     Active Substance: MESALAMINE
     Route: 065
  109. MESALAMINE [Suspect]
     Active Substance: MESALAMINE
     Route: 065
  110. MESALAMINE [Suspect]
     Active Substance: MESALAMINE
     Route: 048
  111. MESALAMINE [Suspect]
     Active Substance: MESALAMINE
     Route: 048
  112. MESALAMINE [Suspect]
     Active Substance: MESALAMINE
     Dosage: DURATION : 243 (UNSPECIFIED UNITS)
     Route: 065
  113. MESALAMINE [Suspect]
     Active Substance: MESALAMINE
     Route: 065
  114. MESALAMINE [Suspect]
     Active Substance: MESALAMINE
     Route: 065
  115. MESALAMINE [Suspect]
     Active Substance: MESALAMINE
     Dosage: DURATION: 243 (UNSPECIFIED UNITS)
     Route: 065
  116. MESALAMINE [Suspect]
     Active Substance: MESALAMINE
     Route: 065
  117. MESALAMINE [Suspect]
     Active Substance: MESALAMINE
     Dosage: TABLET (DELAYED AND EXTENDED RELEASE)
     Route: 065
  118. MESALAMINE [Suspect]
     Active Substance: MESALAMINE
     Route: 065
  119. MESALAMINE [Suspect]
     Active Substance: MESALAMINE
     Route: 065
  120. MESALAMINE [Suspect]
     Active Substance: MESALAMINE
     Indication: Colitis ulcerative
     Route: 065
  121. MESALAMINE [Suspect]
     Active Substance: MESALAMINE
     Route: 065
  122. MESALAMINE [Suspect]
     Active Substance: MESALAMINE
     Route: 065
  123. MESALAMINE [Suspect]
     Active Substance: MESALAMINE
     Route: 065
  124. MESALAMINE [Suspect]
     Active Substance: MESALAMINE
     Route: 065
  125. MESALAMINE [Suspect]
     Active Substance: MESALAMINE
     Route: 048
  126. MESALAMINE [Suspect]
     Active Substance: MESALAMINE
     Route: 048
  127. MESALAMINE [Suspect]
     Active Substance: MESALAMINE
     Route: 048
  128. MESALAMINE [Suspect]
     Active Substance: MESALAMINE
     Route: 065
  129. MESALAMINE [Suspect]
     Active Substance: MESALAMINE
     Route: 065
  130. MESALAMINE [Suspect]
     Active Substance: MESALAMINE
     Route: 048
  131. MESALAMINE [Suspect]
     Active Substance: MESALAMINE
     Route: 048
  132. MESALAMINE [Suspect]
     Active Substance: MESALAMINE
     Route: 065
  133. MESALAMINE [Suspect]
     Active Substance: MESALAMINE
     Route: 065
  134. MESALAMINE [Suspect]
     Active Substance: MESALAMINE
     Dosage: 243 (UNIT UNSPECIFIED)
     Route: 065
  135. MESALAMINE [Suspect]
     Active Substance: MESALAMINE
     Route: 065
  136. MESALAMINE [Suspect]
     Active Substance: MESALAMINE
     Route: 065
  137. ENTYVIO [Suspect]
     Active Substance: VEDOLIZUMAB
     Indication: Colitis ulcerative
     Route: 042
     Dates: start: 2017, end: 2017
  138. ENTYVIO [Suspect]
     Active Substance: VEDOLIZUMAB
     Indication: Deep vein thrombosis
     Route: 048
  139. ENTYVIO [Suspect]
     Active Substance: VEDOLIZUMAB
     Route: 042
  140. ENTYVIO [Suspect]
     Active Substance: VEDOLIZUMAB
     Route: 048
  141. ENTYVIO [Suspect]
     Active Substance: VEDOLIZUMAB
     Route: 042
  142. ENTYVIO [Suspect]
     Active Substance: VEDOLIZUMAB
     Route: 065
  143. ENTYVIO [Suspect]
     Active Substance: VEDOLIZUMAB
     Route: 065
  144. ENTYVIO [Suspect]
     Active Substance: VEDOLIZUMAB
     Route: 065
  145. ENTYVIO [Suspect]
     Active Substance: VEDOLIZUMAB
     Route: 065
  146. ENTYVIO [Suspect]
     Active Substance: VEDOLIZUMAB
     Route: 042
  147. ASACOL [Suspect]
     Active Substance: MESALAMINE
     Indication: Colitis ulcerative
     Dosage: ENTERIC TABLET, 0.8 G, 3TABLEST TWO TIMES A DAY
     Route: 065
     Dates: start: 20161001
  148. ASACOL [Suspect]
     Active Substance: MESALAMINE
     Indication: Product used for unknown indication
     Route: 065
     Dates: start: 201610
  149. ASACOL [Suspect]
     Active Substance: MESALAMINE
     Dosage: 4.8 GRAM
     Route: 065
     Dates: start: 20161001
  150. ASACOL [Suspect]
     Active Substance: MESALAMINE
     Dosage: 3 DOSAGE FORM, BID
     Route: 065
     Dates: start: 201610
  151. ASACOL [Suspect]
     Active Substance: MESALAMINE
     Dosage: 0.8 G, 3 TABLETS TWO TIMES A DAY (4.8 G DAILY)
     Route: 065
     Dates: start: 201610
  152. ASACOL [Suspect]
     Active Substance: MESALAMINE
     Dosage: 3 DOSAGE FORM, Q12H
     Route: 065
     Dates: start: 20161001
  153. ASACOL [Suspect]
     Active Substance: MESALAMINE
     Dosage: 2.4 GRAM, QD
     Route: 065
     Dates: start: 20161001
  154. ASACOL [Suspect]
     Active Substance: MESALAMINE
     Dosage: 3 GRAM, QD
     Route: 065
     Dates: start: 20161001
  155. ASACOL [Suspect]
     Active Substance: MESALAMINE
     Dosage: 0.8 G, 3 TABLETS TWO TIMES A DAY (4.8 G DAILY)
     Route: 065
  156. ASACOL [Suspect]
     Active Substance: MESALAMINE
     Route: 065
  157. ASACOL [Suspect]
     Active Substance: MESALAMINE
     Route: 065
  158. ASACOL [Suspect]
     Active Substance: MESALAMINE
     Route: 065
  159. ASACOL [Suspect]
     Active Substance: MESALAMINE
     Route: 065
  160. ASACOL [Suspect]
     Active Substance: MESALAMINE
     Route: 065
  161. ASACOL [Suspect]
     Active Substance: MESALAMINE
     Route: 065
  162. ASACOL [Suspect]
     Active Substance: MESALAMINE
     Dosage: TABLET (ENTERIC- COATED)
     Route: 065
  163. ASACOL [Suspect]
     Active Substance: MESALAMINE
     Route: 065
  164. ASACOL [Suspect]
     Active Substance: MESALAMINE
     Route: 065
  165. ASACOL [Suspect]
     Active Substance: MESALAMINE
     Route: 065
  166. ASACOL [Suspect]
     Active Substance: MESALAMINE
     Route: 065
  167. ASACOL [Suspect]
     Active Substance: MESALAMINE
     Route: 065
  168. ASACOL [Suspect]
     Active Substance: MESALAMINE
     Route: 065
  169. ASACOL [Suspect]
     Active Substance: MESALAMINE
     Route: 065
  170. INFLIXIMAB [Suspect]
     Active Substance: INFLIXIMAB
     Indication: Colitis ulcerative
     Dosage: UNKNOWN DOSE ON WEEK 0,2, 6, THEN EVERY 8 WEEKS
     Route: 042
  171. INFLIXIMAB [Suspect]
     Active Substance: INFLIXIMAB
     Indication: Crohn^s disease
     Route: 065
  172. INFLIXIMAB [Suspect]
     Active Substance: INFLIXIMAB
     Dosage: 5 MILLIGRAM/KILOGRAM, Q8WK
     Route: 042
     Dates: start: 20171019
  173. INFLIXIMAB [Suspect]
     Active Substance: INFLIXIMAB
     Dosage: 1 CYCLICAL
     Route: 042
     Dates: start: 201709
  174. INFLIXIMAB [Suspect]
     Active Substance: INFLIXIMAB
     Route: 042
     Dates: start: 20170101, end: 20170901
  175. INFLIXIMAB [Suspect]
     Active Substance: INFLIXIMAB
     Dosage: 5 MILLIGRAM/KILOGRAM, Q8WK
     Route: 042
     Dates: start: 20170101, end: 20170901
  176. INFLIXIMAB [Suspect]
     Active Substance: INFLIXIMAB
     Dosage: 0, 2, 6 WEEKS, THEN EVERY 8 WEEKS (1 CYCLICAL)
     Route: 042
  177. INFLIXIMAB [Suspect]
     Active Substance: INFLIXIMAB
     Route: 042
  178. INFLIXIMAB [Suspect]
     Active Substance: INFLIXIMAB
     Route: 042
  179. INFLIXIMAB [Suspect]
     Active Substance: INFLIXIMAB
     Route: 042
  180. INFLIXIMAB [Suspect]
     Active Substance: INFLIXIMAB
     Route: 042
  181. INFLIXIMAB [Suspect]
     Active Substance: INFLIXIMAB
     Route: 042
  182. INFLIXIMAB [Suspect]
     Active Substance: INFLIXIMAB
     Route: 042
  183. INFLIXIMAB [Suspect]
     Active Substance: INFLIXIMAB
     Route: 042
  184. CORTIFOAM [Suspect]
     Active Substance: HYDROCORTISONE ACETATE
     Indication: Colitis ulcerative
     Dosage: AEROSOL FOAM
     Route: 048
  185. CORTIFOAM [Suspect]
     Active Substance: HYDROCORTISONE ACETATE
     Dosage: ENEMA
     Route: 065
     Dates: start: 201707
  186. CORTIFOAM [Suspect]
     Active Substance: HYDROCORTISONE ACETATE
     Dosage: 8 DOSAGE FORM, Q8WK
     Route: 065
     Dates: start: 201707
  187. CORTIFOAM [Suspect]
     Active Substance: HYDROCORTISONE ACETATE
     Route: 048
  188. CORTIFOAM [Suspect]
     Active Substance: HYDROCORTISONE ACETATE
     Dosage: AEROSOL FOAM
     Route: 065
  189. CORTIFOAM [Suspect]
     Active Substance: HYDROCORTISONE ACETATE
     Route: 065
  190. CORTIFOAM [Suspect]
     Active Substance: HYDROCORTISONE ACETATE
     Route: 065
  191. CORTIFOAM [Suspect]
     Active Substance: HYDROCORTISONE ACETATE
     Route: 065
  192. CORTIFOAM [Suspect]
     Active Substance: HYDROCORTISONE ACETATE
     Route: 048
  193. CORTIFOAM [Suspect]
     Active Substance: HYDROCORTISONE ACETATE
     Dosage: AEROSOL, FOAM
     Route: 065
  194. CORTIFOAM [Suspect]
     Active Substance: HYDROCORTISONE ACETATE
     Route: 048
  195. CORTIFOAM [Suspect]
     Active Substance: HYDROCORTISONE ACETATE
     Route: 065
  196. WARFARIN [Suspect]
     Active Substance: WARFARIN
     Indication: Deep vein thrombosis
     Route: 065
  197. WARFARIN [Suspect]
     Active Substance: WARFARIN
     Indication: Colitis ulcerative
     Route: 065
  198. WARFARIN [Suspect]
     Active Substance: WARFARIN
     Route: 048
  199. WARFARIN [Suspect]
     Active Substance: WARFARIN
     Dosage: TAPERED DOSE IN 2009 (EXACT DOSE UNKNOWN)
     Route: 048
     Dates: start: 2009
  200. WARFARIN [Suspect]
     Active Substance: WARFARIN
     Route: 048
  201. WARFARIN [Suspect]
     Active Substance: WARFARIN
     Route: 065
  202. WARFARIN [Suspect]
     Active Substance: WARFARIN
     Dosage: 8 DOSAGE FORM, Q8WK
     Route: 048
     Dates: start: 201707
  203. WARFARIN [Suspect]
     Active Substance: WARFARIN
     Dosage: UNK (TAPERED DOSE IN 2009)
     Route: 065
     Dates: start: 2009, end: 2009
  204. WARFARIN [Suspect]
     Active Substance: WARFARIN
     Route: 065
     Dates: start: 2019
  205. WARFARIN [Suspect]
     Active Substance: WARFARIN
     Route: 048
  206. WARFARIN [Suspect]
     Active Substance: WARFARIN
     Route: 048
  207. VEDOLIZUMAB [Suspect]
     Active Substance: VEDOLIZUMAB
     Indication: Colitis ulcerative
     Dosage: POWDER AND SOLVENT FOR CONCENTRATE FOR SOLUTION FOR INFUSION
     Route: 065
     Dates: start: 2017, end: 2017
  208. VEDOLIZUMAB [Suspect]
     Active Substance: VEDOLIZUMAB
     Dosage: POWDER AND SOLVENT FOR CONCENTRATE FOR SOLUTION FOR INFUSION
     Route: 042
     Dates: start: 2017
  209. VEDOLIZUMAB [Suspect]
     Active Substance: VEDOLIZUMAB
     Dosage: 1 DOSAGE FORM, QD
     Route: 065
  210. VEDOLIZUMAB [Suspect]
     Active Substance: VEDOLIZUMAB
     Route: 065
     Dates: start: 2017, end: 2017
  211. VEDOLIZUMAB [Suspect]
     Active Substance: VEDOLIZUMAB
     Route: 042
     Dates: start: 2017, end: 2017
  212. VEDOLIZUMAB [Suspect]
     Active Substance: VEDOLIZUMAB
     Route: 048
     Dates: start: 2017, end: 2017
  213. VEDOLIZUMAB [Suspect]
     Active Substance: VEDOLIZUMAB
     Route: 042
     Dates: end: 2017
  214. VEDOLIZUMAB [Suspect]
     Active Substance: VEDOLIZUMAB
     Route: 042
  215. VEDOLIZUMAB [Suspect]
     Active Substance: VEDOLIZUMAB
     Route: 048
  216. VEDOLIZUMAB [Suspect]
     Active Substance: VEDOLIZUMAB
     Route: 065
     Dates: end: 2017
  217. PREDNISONE [Suspect]
     Active Substance: PREDNISONE
     Indication: Colitis ulcerative
     Dosage: TAPERED DOSE IN 2009,50 MILLIGRAM
     Route: 065
     Dates: start: 2009, end: 2009
  218. PREDNISONE [Suspect]
     Active Substance: PREDNISONE
     Dosage: 50 MG UNKNOWN FREQUENCY
     Route: 065
  219. PREDNISONE [Suspect]
     Active Substance: PREDNISONE
     Dosage: TAPERED DOSE IN 2009
     Route: 065
     Dates: start: 2009, end: 2009
  220. PREDNISONE [Suspect]
     Active Substance: PREDNISONE
     Route: 065
     Dates: start: 2009, end: 2009
  221. PREDNISONE [Suspect]
     Active Substance: PREDNISONE
     Route: 065
     Dates: start: 2017, end: 2017
  222. PREDNISONE [Suspect]
     Active Substance: PREDNISONE
     Route: 048
  223. PREDNISONE [Suspect]
     Active Substance: PREDNISONE
     Route: 065
  224. PREDNISONE [Suspect]
     Active Substance: PREDNISONE
     Route: 065
  225. PREDNISONE [Suspect]
     Active Substance: PREDNISONE
     Route: 065
  226. PREDNISONE [Suspect]
     Active Substance: PREDNISONE
     Route: 065
     Dates: end: 2009
  227. PREDNISONE [Suspect]
     Active Substance: PREDNISONE
     Route: 048
  228. MESALAMINE [Suspect]
     Active Substance: MESALAMINE
     Indication: Colitis ulcerative
     Route: 065
     Dates: start: 20160101, end: 20161001
  229. SULFASALAZINE [Suspect]
     Active Substance: SULFASALAZINE
     Indication: Colitis ulcerative
     Route: 065
  230. SULFASALAZINE [Suspect]
     Active Substance: SULFASALAZINE
     Indication: Arthritis
     Route: 048
  231. SULFASALAZINE [Suspect]
     Active Substance: SULFASALAZINE
     Route: 065
  232. SULFASALAZINE [Suspect]
     Active Substance: SULFASALAZINE
     Route: 065
  233. SULFASALAZINE [Suspect]
     Active Substance: SULFASALAZINE
     Route: 048
  234. SULFASALAZINE [Suspect]
     Active Substance: SULFASALAZINE
     Route: 065
  235. SULFASALAZINE [Suspect]
     Active Substance: SULFASALAZINE
     Route: 065
  236. ADALIMUMAB [Suspect]
     Active Substance: ADALIMUMAB
     Indication: Crohn^s disease
     Dosage: 8 DOSAGE FORM
     Route: 065
     Dates: start: 201707
  237. ADALIMUMAB [Suspect]
     Active Substance: ADALIMUMAB
     Route: 065
  238. ADALIMUMAB [Suspect]
     Active Substance: ADALIMUMAB
     Route: 048
  239. ADALIMUMAB [Suspect]
     Active Substance: ADALIMUMAB
     Dosage: SOLUTION SUBCUTANEOUS
     Route: 048
  240. ADALIMUMAB [Suspect]
     Active Substance: ADALIMUMAB
     Route: 048
  241. ADALIMUMAB [Suspect]
     Active Substance: ADALIMUMAB
     Route: 065
  242. ADALIMUMAB [Suspect]
     Active Substance: ADALIMUMAB
     Route: 048
  243. WARFARIN SODIUM [Suspect]
     Active Substance: WARFARIN SODIUM
     Indication: Deep vein thrombosis
     Route: 048
  244. WARFARIN SODIUM [Suspect]
     Active Substance: WARFARIN SODIUM
     Indication: Colitis ulcerative
     Route: 048
  245. WARFARIN SODIUM [Suspect]
     Active Substance: WARFARIN SODIUM
     Route: 065
  246. WARFARIN SODIUM [Suspect]
     Active Substance: WARFARIN SODIUM
     Route: 048
  247. WARFARIN SODIUM [Suspect]
     Active Substance: WARFARIN SODIUM
     Route: 048
  248. WARFARIN SODIUM [Suspect]
     Active Substance: WARFARIN SODIUM
     Route: 065
  249. WARFARIN SODIUM [Suspect]
     Active Substance: WARFARIN SODIUM
     Route: 048
  250. WARFARIN SODIUM [Suspect]
     Active Substance: WARFARIN SODIUM
     Route: 048
  251. WARFARIN SODIUM [Suspect]
     Active Substance: WARFARIN SODIUM
     Route: 065
  252. CORTISONE ACETATE [Suspect]
     Active Substance: CORTISONE ACETATE
     Indication: Product used for unknown indication
     Route: 065
  253. HYDROCORTISONE ACETATE [Suspect]
     Active Substance: HYDROCORTISONE ACETATE
     Indication: Crohn^s disease
     Route: 042
  254. HYDROCORTISONE ACETATE [Suspect]
     Active Substance: HYDROCORTISONE ACETATE
     Indication: Colitis ulcerative
  255. ALBENDAZOLE [Suspect]
     Active Substance: ALBENDAZOLE
     Indication: Colitis ulcerative
     Route: 042
     Dates: start: 2017, end: 2017
  256. ALBENDAZOLE [Suspect]
     Active Substance: ALBENDAZOLE
     Indication: Deep vein thrombosis
     Route: 042
     Dates: end: 2017
  257. ALBENDAZOLE [Suspect]
     Active Substance: ALBENDAZOLE
     Route: 065
  258. PARA-AMINOSALICYLIC ACID [Suspect]
     Active Substance: AMINOSALICYLIC ACID
     Indication: Deep vein thrombosis
     Route: 048
  259. PARA-AMINOSALICYLIC ACID [Suspect]
     Active Substance: AMINOSALICYLIC ACID
     Indication: Colitis ulcerative
  260. HUMIRA [Suspect]
     Active Substance: ADALIMUMAB
     Indication: Deep vein thrombosis
     Route: 065
  261. HUMIRA [Suspect]
     Active Substance: ADALIMUMAB
     Indication: Crohn^s disease
     Route: 065
  262. HUMIRA [Suspect]
     Active Substance: ADALIMUMAB
     Route: 048
  263. HUMIRA [Suspect]
     Active Substance: ADALIMUMAB
     Dosage: SOLUTION SUBCUTANEOUS
     Route: 065
  264. HUMIRA [Suspect]
     Active Substance: ADALIMUMAB
     Route: 065
  265. HUMIRA [Suspect]
     Active Substance: ADALIMUMAB
     Route: 065
  266. MESALAMINE [Suspect]
     Active Substance: MESALAMINE
     Indication: Colitis ulcerative
     Route: 065
  267. MESALAMINE [Suspect]
     Active Substance: MESALAMINE
     Route: 048
  268. HYDROCORTISONE ACETATE [Suspect]
     Active Substance: HYDROCORTISONE ACETATE
     Indication: Crohn^s disease
     Route: 042
  269. HYDROCORTISONE ACETATE [Suspect]
     Active Substance: HYDROCORTISONE ACETATE
     Indication: Colitis ulcerative
     Route: 065
  270. HYDROCORTISONE ACETATE [Suspect]
     Active Substance: HYDROCORTISONE ACETATE
     Route: 048
  271. HYDROCORTISONE ACETATE [Suspect]
     Active Substance: HYDROCORTISONE ACETATE
     Route: 048
  272. HYDROCORTISONE ACETATE [Suspect]
     Active Substance: HYDROCORTISONE ACETATE
     Route: 065
  273. HYDROCORTISONE ACETATE [Suspect]
     Active Substance: HYDROCORTISONE ACETATE
     Route: 048
  274. HYDROCORTISONE ACETATE [Suspect]
     Active Substance: HYDROCORTISONE ACETATE
     Route: 048
  275. HYDROCORTISONE ACETATE [Suspect]
     Active Substance: HYDROCORTISONE ACETATE
     Route: 048
  276. CORTIFOAM [Concomitant]
     Active Substance: HYDROCORTISONE ACETATE
     Indication: Colitis ulcerative
     Dosage: ENEMA
  277. SULFASALAZINE [Concomitant]
     Active Substance: SULFASALAZINE
     Indication: Colitis ulcerative
     Dates: start: 20090101, end: 20160101
  278. SULFASALAZINE [Concomitant]
     Active Substance: SULFASALAZINE
     Indication: Arthritis
     Dates: start: 2009, end: 2016
  279. SULFASALAZINE [Concomitant]
     Active Substance: SULFASALAZINE
     Dates: start: 20160101, end: 20160101
  280. SULFASALAZINE [Concomitant]
     Active Substance: SULFASALAZINE
     Dates: end: 20160101
  281. HUMIRA [Concomitant]
     Active Substance: ADALIMUMAB
     Indication: Product used for unknown indication
     Dosage: SOLUTION FOR INJECTION
     Dates: start: 201707
  282. HUMIRA [Concomitant]
     Active Substance: ADALIMUMAB
     Indication: Deep vein thrombosis
  283. HUMIRA [Concomitant]
     Active Substance: ADALIMUMAB
     Indication: Crohn^s disease
     Route: 065
  284. HUMIRA [Concomitant]
     Active Substance: ADALIMUMAB
     Indication: Colitis ulcerative
     Route: 048
  285. HUMIRA [Concomitant]
     Active Substance: ADALIMUMAB
     Dosage: SOLUTION SUBCUTANEOUS
     Route: 048
  286. HUMIRA [Concomitant]
     Active Substance: ADALIMUMAB
     Route: 048
  287. HUMIRA [Concomitant]
     Active Substance: ADALIMUMAB
     Route: 048
  288. HUMIRA [Concomitant]
     Active Substance: ADALIMUMAB
     Route: 048
  289. METHOTREXATE [Concomitant]
     Active Substance: METHOTREXATE
     Indication: Colitis ulcerative
     Dosage: UNK
     Dates: start: 20090101, end: 20160101
  290. METHOTREXATE [Concomitant]
     Active Substance: METHOTREXATE
     Dates: start: 201707, end: 201709
  291. METHOTREXATE [Concomitant]
     Active Substance: METHOTREXATE
  292. METHOTREXATE [Concomitant]
     Active Substance: METHOTREXATE
  293. METHOTREXATE [Concomitant]
     Active Substance: METHOTREXATE
  294. BUDESONIDE [Concomitant]
     Active Substance: BUDESONIDE
     Indication: Product used for unknown indication
     Dosage: UNK(TABLET EVERY 8WEEKS)
     Route: 048
  295. XELJANZ [Concomitant]
     Active Substance: TOFACITINIB CITRATE
     Indication: Colitis ulcerative
     Route: 048
  296. XELJANZ [Concomitant]
     Active Substance: TOFACITINIB CITRATE
     Route: 048
  297. TOFACITINIB CITRATE [Concomitant]
     Active Substance: TOFACITINIB CITRATE
     Indication: Product used for unknown indication

REACTIONS (20)
  - Bronchiectasis [Not Recovered/Not Resolved]
  - Weight decreased [Not Recovered/Not Resolved]
  - Impaired quality of life [Not Recovered/Not Resolved]
  - Deep vein thrombosis [Not Recovered/Not Resolved]
  - Colitis ulcerative [Not Recovered/Not Resolved]
  - Loss of personal independence in daily activities [Not Recovered/Not Resolved]
  - Frequent bowel movements [Not Recovered/Not Resolved]
  - Condition aggravated [Not Recovered/Not Resolved]
  - Colitis ulcerative [Not Recovered/Not Resolved]
  - Impaired work ability [Not Recovered/Not Resolved]
  - Steroid dependence [Not Recovered/Not Resolved]
  - Stress [Not Recovered/Not Resolved]
  - Rectal haemorrhage [Not Recovered/Not Resolved]
  - Haematochezia [Not Recovered/Not Resolved]
  - Drug ineffective [Not Recovered/Not Resolved]
  - Medication error [Not Recovered/Not Resolved]
  - Product use in unapproved indication [Not Recovered/Not Resolved]
  - Off label use [Not Recovered/Not Resolved]
  - Inappropriate schedule of product administration [Not Recovered/Not Resolved]
  - Intentional product use issue [Not Recovered/Not Resolved]

NARRATIVE: CASE EVENT DATE: 20080101
